FAERS Safety Report 20864018 (Version 1)
Quarter: 2022Q2

REPORT INFORMATION
  Report Type: Report from Study
  Country: CO (occurrence: CO)
  Receive Date: 20220523
  Receipt Date: 20220523
  Transmission Date: 20220721
  Serious: Yes (Life-Threatening)
  Sender: FDA-Public Use
  Company Number: CO-NOVARTISPH-NVSC2021CO127005

PATIENT
  Sex: Female

DRUGS (8)
  1. KISQALI [Suspect]
     Active Substance: RIBOCICLIB
     Indication: Breast cancer metastatic
     Dosage: UNK UNK, QD
     Route: 048
  2. KISQALI [Suspect]
     Active Substance: RIBOCICLIB
     Dosage: 2 DF, QD
     Route: 048
  3. KISQALI [Suspect]
     Active Substance: RIBOCICLIB
     Dosage: 1 DF, QD
     Route: 048
  4. KISQALI [Suspect]
     Active Substance: RIBOCICLIB
     Dosage: UNK (24 MAY LAST DOSE)
     Route: 065
  5. KISQALI [Suspect]
     Active Substance: RIBOCICLIB
     Dosage: 2 UNK, QD (TABLETS)
     Route: 048
  6. KISQALI [Suspect]
     Active Substance: RIBOCICLIB
     Dosage: 3 DOSAGE FORM, QD (TABLET)
     Route: 048
  7. KISQALI [Suspect]
     Active Substance: RIBOCICLIB
     Dosage: 2 DOSAGE FORM, QD (TABLET)
     Route: 048
  8. FULVESTRANT [Suspect]
     Active Substance: FULVESTRANT
     Indication: Product used for unknown indication
     Dosage: UNK
     Route: 065

REACTIONS (30)
  - Feeling abnormal [Unknown]
  - Malaise [Recovering/Resolving]
  - Depressed mood [Unknown]
  - Dysstasia [Unknown]
  - COVID-19 [Unknown]
  - Abdominal discomfort [Unknown]
  - Anosmia [Unknown]
  - Cystitis [Unknown]
  - Arthralgia [Unknown]
  - Ageusia [Unknown]
  - Influenza [Unknown]
  - Behaviour disorder [Unknown]
  - Anxiety [Unknown]
  - Osteopenia [Unknown]
  - Bronchitis [Unknown]
  - Osteoporosis [Unknown]
  - Hair disorder [Unknown]
  - Hepatic pain [Unknown]
  - Bone pain [Unknown]
  - Insomnia [Unknown]
  - Skin wrinkling [Unknown]
  - Diarrhoea [Unknown]
  - Dyspnoea [Unknown]
  - Decreased appetite [Unknown]
  - Constipation [Unknown]
  - Back pain [Unknown]
  - Vomiting [Unknown]
  - Cough [Unknown]
  - Nausea [Unknown]
  - Incorrect dose administered [Unknown]
